FAERS Safety Report 5337440-2 (Version None)
Quarter: 2007Q2

REPORT INFORMATION
  Report Type: 
  Country: None (occurrence: None)
  Receive Date: 20070529
  Receipt Date: 20070524
  Transmission Date: 20071010
  Serious: Yes (Hospitalization)
  Sender: FDA-Public Use
  Company Number: US-ROXANE LABORATORIES, INC-2007-DE-03110GD

PATIENT
  Age: 43 Year
  Sex: Male

DRUGS (4)
  1. MORPHINE [Suspect]
     Route: 048
  2. CAPECITABINE [Suspect]
     Indication: PANCREATIC CARCINOMA METASTATIC
     Route: 048
  3. PACLITAXEL [Concomitant]
     Indication: PANCREATIC CARCINOMA METASTATIC
  4. CYCLOSPORINE [Concomitant]
     Indication: PANCREATIC CARCINOMA METASTATIC

REACTIONS (2)
  - COLITIS [None]
  - GASTROINTESTINAL HYPOMOTILITY [None]
